FAERS Safety Report 18925864 (Version 1)
Quarter: 2021Q1

REPORT INFORMATION
  Report Type: Other
  Country: NL (occurrence: NL)
  Receive Date: 20210222
  Receipt Date: 20210222
  Transmission Date: 20210420
  Serious: Yes (Hospitalization)
  Sender: FDA-Public Use
  Company Number: NL-CELLTRION INC.-2021NL001940

PATIENT

DRUGS (10)
  1. REMSIMA [Suspect]
     Active Substance: INFLIXIMAB
     Indication: CROHN^S DISEASE
     Dosage: 5MG/KG, 1X/6W
     Dates: start: 20160308, end: 20171108
  2. FOLIUMZUUR [Concomitant]
     Active Substance: FOLIC ACID
     Dosage: 5 MG
     Dates: start: 20161108, end: 20170629
  3. METHOTREXATE (METHOTREXATE SODIUM) [Concomitant]
     Active Substance: METHOTREXATE SODIUM
     Dosage: 15MG, 1X/W
     Dates: start: 20160613
  4. AMITRIPTYLINE HCL [Concomitant]
     Active Substance: AMITRIPTYLINE
     Dosage: 25 MG
     Dates: start: 20170210, end: 20170214
  5. DOXYCYCLINE. [Concomitant]
     Active Substance: DOXYCYCLINE
     Dosage: 100 MG
     Dates: start: 20161020, end: 20170210
  6. PARACETAMOL [Concomitant]
     Active Substance: ACETAMINOPHEN
     Dosage: 1000 MG
     Dates: start: 20170210, end: 20170211
  7. NATRIUMCHLORIDE INFVLST [Concomitant]
     Dosage: 1500 ML
     Dates: start: 20170210, end: 20170213
  8. CEFTRIAXON INFUSIEPOEDER [Concomitant]
     Dosage: 2000 MG
     Dates: start: 20170210, end: 20170210
  9. METHOTREXAAT INJVLST [Concomitant]
     Dosage: 15 MG
     Dates: start: 20161108, end: 20170210
  10. HYDROXOCOBALAMINE INJVLST [Concomitant]
     Dosage: 1000 MICROGRAM
     Dates: start: 20170210, end: 20170214

REACTIONS (2)
  - Pneumonia [Recovered/Resolved]
  - Off label use [Unknown]

NARRATIVE: CASE EVENT DATE: 20170210
